FAERS Safety Report 5502311-5 (Version None)
Quarter: 2007Q4

REPORT INFORMATION
  Report Type: 
  Country: None (occurrence: None)
  Receive Date: 20071029
  Receipt Date: 20071015
  Transmission Date: 20080405
  Serious: Yes (Disabling)
  Sender: FDA-Public Use
  Company Number: POMP-11236

PATIENT
  Age: 42 Year
  Sex: Male
  Weight: 69 kg

DRUGS (3)
  1. MYOZYME [Suspect]
     Indication: GLYCOGEN STORAGE DISEASE TYPE II
     Dosage: 20 MG/KG Q2WKS IV
     Route: 042
     Dates: start: 20060908
  2. TENORMIN. MFR: IMPERIAL CHEMICAL INDUSTRIES LIMITED [Concomitant]
  3. PLENDIL. MFR: HAESSLE AB [Concomitant]

REACTIONS (4)
  - DECREASED ACTIVITY [None]
  - DISEASE PROGRESSION [None]
  - GLYCOGEN STORAGE DISEASE TYPE II [None]
  - VITAL CAPACITY DECREASED [None]
